FAERS Safety Report 6942636-X (Version None)
Quarter: 2010Q3

REPORT INFORMATION
  Report Type: 
  Country: None (occurrence: None)
  Receive Date: 20100819
  Receipt Date: 20100805
  Transmission Date: 20110219
  Serious: Yes (Hospitalization)
  Sender: FDA-Public Use
  Company Number: A-NJ2010-36841

PATIENT
  Age: 55 Year
  Sex: Female

DRUGS (2)
  1. TRACLEER [Suspect]
     Indication: PULMONARY ARTERIAL HYPERTENSION
     Dosage: ORAL
     Route: 048
     Dates: start: 20100329, end: 20100718
  2. TADALAFIL (TADALAFIL) [Concomitant]

REACTIONS (3)
  - HAEMATEMESIS [None]
  - PNEUMONIA [None]
  - PULMONARY EMBOLISM [None]
